FAERS Safety Report 8556769-8 (Version None)
Quarter: 2012Q3

REPORT INFORMATION
  Report Type: 
  Country: None (occurrence: None)
  Receive Date: 20120719
  Receipt Date: 20120713
  Transmission Date: 20120928
  Serious: Yes (Hospitalization)
  Sender: FDA-Public Use
  Company Number: 136647

PATIENT
  Age: 52 Year
  Sex: Female

DRUGS (2)
  1. RIFAMPIN [Suspect]
     Indication: TUBERCULOSIS
  2. RIFAMPICIN [Concomitant]

REACTIONS (2)
  - ACCELERATED HYPERTENSION [None]
  - BLOOD PRESSURE INADEQUATELY CONTROLLED [None]
